FAERS Safety Report 6122100-0 (Version None)
Quarter: 2009Q1

REPORT INFORMATION
  Report Type: 
  Country: None (occurrence: None)
  Receive Date: 20090316
  Receipt Date: 20090316
  Transmission Date: 20090719
  Serious: Yes (Life-Threatening, Hospitalization)
  Sender: FDA-Public Use
  Company Number: None

PATIENT
  Age: 51 Year
  Sex: Male
  Weight: 81.6475 kg

DRUGS (2)
  1. RELAFEN [Suspect]
     Indication: ANTIINFLAMMATORY THERAPY
     Dosage: PO
     Route: 048
  2. RELAFEN [Suspect]
     Indication: OSTEOARTHRITIS
     Dosage: PO
     Route: 048

REACTIONS (1)
  - STEVENS-JOHNSON SYNDROME [None]
